FAERS Safety Report 24609578 (Version 3)
Quarter: 2024Q4

REPORT INFORMATION
  Report Type: Report from Study
  Country: ES (occurrence: ES)
  Receive Date: 20241112
  Receipt Date: 20241231
  Transmission Date: 20250115
  Serious: Yes (Death, Other)
  Sender: TAKEDA
  Company Number: ES-TAKEDA-2024TUS100995

PATIENT
  Sex: Male

DRUGS (1)
  1. FRUQUINTINIB [Suspect]
     Active Substance: FRUQUINTINIB
     Indication: Adenocarcinoma
     Dosage: UNK

REACTIONS (4)
  - Metastases to liver [Fatal]
  - Adenocarcinoma of colon [Unknown]
  - Metastases to lung [Unknown]
  - Asthenia [Unknown]

NARRATIVE: CASE EVENT DATE: 20241113
